FAERS Safety Report 25413950 (Version 1)
Quarter: 2025Q2

REPORT INFORMATION
  Report Type: Spontaneous
  Country: US (occurrence: None)
  Receive Date: 20250608
  Receipt Date: 20250608
  Transmission Date: 20250716
  Serious: Yes (Disabling, Other)
  Sender: FDA-CTU
  Company Number: None

PATIENT
  Age: 76 Year
  Sex: Female
  Weight: 47.7 kg

DRUGS (2)
  1. VOQUEZNA [Suspect]
     Active Substance: VONOPRAZAN FUMARATE
     Indication: Gastrooesophageal reflux disease
     Route: 048
     Dates: start: 20250507, end: 20250606
  2. VOQUEZNA [Suspect]
     Active Substance: VONOPRAZAN FUMARATE
     Indication: Gastritis

REACTIONS (4)
  - Nausea [None]
  - Diarrhoea [None]
  - Frequent bowel movements [None]
  - Gastrointestinal motility disorder [None]

NARRATIVE: CASE EVENT DATE: 20250507
